FAERS Safety Report 24438300 (Version 2)
Quarter: 2025Q3

REPORT INFORMATION
  Report Type: Report from Study
  Country: US (occurrence: US)
  Receive Date: 20241015
  Receipt Date: 20250803
  Transmission Date: 20251021
  Serious: Yes (Other)
  Sender: ALEXION PHARMACEUTICALS
  Company Number: US-AstraZeneca-CH-00721334A

PATIENT

DRUGS (1)
  1. ULTOMIRIS [Suspect]
     Active Substance: RAVULIZUMAB-CWVZ
     Route: 065

REACTIONS (6)
  - Meningitis [Unknown]
  - Arthralgia [Unknown]
  - Nerve compression [Unknown]
  - Neuralgia [Unknown]
  - Musculoskeletal discomfort [Unknown]
  - Stress [Unknown]
